FAERS Safety Report 16462881 (Version 4)
Quarter: 2019Q3

REPORT INFORMATION
  Report Type: Report from Study
  Country: US (occurrence: US)
  Receive Date: 20190621
  Receipt Date: 20190715
  Transmission Date: 20191004
  Serious: Yes (Hospitalization, Other)
  Sender: FDA-Public Use
  Company Number: US-B.I. PHARMACEUTICALS,INC./RIDGEFIELD-2019-MR-000275

PATIENT
  Age: 71 Year
  Sex: Male
  Weight: 85.28 kg

DRUGS (2)
  1. OFEV [Suspect]
     Active Substance: NINTEDANIB
     Indication: OVERWEIGHT
     Route: 048
  2. OFEV [Suspect]
     Active Substance: NINTEDANIB
     Indication: IDIOPATHIC PULMONARY FIBROSIS
     Dosage: TAKE 1 CAPSULE BY MOUTH TWICE A DAY 12 HOURS APART WITH FOOD
     Route: 048
     Dates: start: 20190524, end: 20190527

REACTIONS (11)
  - Cough [Recovered/Resolved]
  - Diarrhoea [Not Recovered/Not Resolved]
  - Haematochezia [Recovered/Resolved]
  - Liver disorder [Recovered/Resolved]
  - Epistaxis [Recovered/Resolved]
  - Haemoptysis [Not Recovered/Not Resolved]
  - Contusion [Not Recovered/Not Resolved]
  - Rectal haemorrhage [Recovered/Resolved]
  - Mouth haemorrhage [Not Recovered/Not Resolved]
  - Nausea [Not Recovered/Not Resolved]
  - Haematemesis [Recovered/Resolved]

NARRATIVE: CASE EVENT DATE: 201905
